FAERS Safety Report 5313342-2 (Version None)
Quarter: 2007Q2

REPORT INFORMATION
  Report Type: 
  Country: None (occurrence: None)
  Receive Date: 20070501
  Receipt Date: 20070418
  Transmission Date: 20071010
  Serious: Yes (Other)
  Sender: FDA-Public Use
  Company Number: JP-ELI_LILLY_AND_COMPANY-JP200704004022

PATIENT
  Age: 80 Year
  Sex: Male

DRUGS (2)
  1. GEMZAR [Suspect]
  2. GEMZAR [Suspect]
     Dosage: 1400 MG, OTHER
     Route: 042
     Dates: start: 20070403, end: 20070403

REACTIONS (1)
  - ULCERATIVE KERATITIS [None]
